FAERS Safety Report 15196074 (Version 1)
Quarter: 2018Q3

REPORT INFORMATION
  Report Type: Spontaneous
  Country: US (occurrence: US)
  Receive Date: 20180725
  Receipt Date: 20180725
  Transmission Date: 20181010
  Serious: No
  Sender: FDA-Public Use
  Company Number: US-EPIC PHARMA LLC-2017EPC00156

PATIENT
  Sex: Female
  Weight: 63.49 kg

DRUGS (4)
  1. SERTRALINE [Concomitant]
     Active Substance: SERTRALINE HYDROCHLORIDE
     Dosage: 100 MG, 1X/DAY
  2. LORAZEPAM. [Concomitant]
     Active Substance: LORAZEPAM
     Dosage: 1 MG, AS NEEDED
  3. DEXTROAMPHET SACCHARAT, AMPHET ASPARTATE, DEXTROAMPHET SULFATE AND AMPHET SULFAT [Suspect]
     Active Substance: AMPHETAMINE ASPARTATE\AMPHETAMINE SULFATE\DEXTROAMPHETAMINE SACCHARATE\DEXTROAMPHETAMINE SULFATE
     Indication: ATTENTION DEFICIT/HYPERACTIVITY DISORDER
     Dosage: 20 MG, UP TO 2X/DAY, MAY ALSO TAKE 10 MG TO 20 MG IN THE AFTERNOON
     Route: 048
     Dates: start: 2015
  4. DEXTROAMPHET SACCHARAT, AMPHET ASPARTATE, DEXTROAMPHET SULFATE AND AMPHET SULFAT [Suspect]
     Active Substance: AMPHETAMINE ASPARTATE\AMPHETAMINE SULFATE\DEXTROAMPHETAMINE SACCHARATE\DEXTROAMPHETAMINE SULFATE
     Indication: SLEEP DISORDER

REACTIONS (6)
  - Drug effect incomplete [Not Recovered/Not Resolved]
  - Product storage error [Unknown]
  - Disturbance in attention [Not Recovered/Not Resolved]
  - Apathy [Not Recovered/Not Resolved]
  - Somnolence [Not Recovered/Not Resolved]
  - Depression [Not Recovered/Not Resolved]
